FAERS Safety Report 4516971-9 (Version None)
Quarter: 2004Q4

REPORT INFORMATION
  Report Type: 
  Country: None (occurrence: None)
  Receive Date: 20041130
  Receipt Date: 20041115
  Transmission Date: 20050328
  Serious: Yes (Death)
  Sender: FDA-Public Use
  Company Number: 20041100487

PATIENT
  Age: 85 Year
  Sex: Female

DRUGS (12)
  1. BREVIBLOC [Suspect]
     Indication: SINUS TACHYCARDIA
     Dosage: 30 MBH ONCE IV
     Route: 042
     Dates: start: 20041025, end: 20041025
  2. BREVIBLOC [Suspect]
     Indication: SINUS TACHYCARDIA
     Dosage: 30 MG ONCE IV
     Route: 042
     Dates: start: 20041025, end: 20041025
  3. HEPARIN [Concomitant]
  4. ISOFLURANE [Concomitant]
  5. THIOPENTAL SODIUM [Concomitant]
  6. FENTANEST (FENTANYL CITRATE) [Concomitant]
  7. VECURONIUM BROMIDE [Concomitant]
  8. GASTER (FAMOTIDINE) [Concomitant]
  9. VAGOSTIGMIN NEOSTIGMINE METHYLFULFATE) [Concomitant]
  10. ATROPINE SULFATE [Concomitant]
  11. NITOROL (ISOSORDBIDE DINITRATE) [Concomitant]
  12. NITROUS OXIDE [Concomitant]

REACTIONS (18)
  - ACID BASE BALANCE ABNORMAL [None]
  - ALANINE AMINOTRANSFERASE INCREASED [None]
  - ASPARTATE AMINOTRANSFERASE INCREASED [None]
  - BLOOD BILIRUBIN INCREASED [None]
  - BLOOD CREATINE PHOSPHOKINASE INCREASED [None]
  - CARDIAC ARREST [None]
  - COAGULOPATHY [None]
  - DEPRESSED LEVEL OF CONSCIOUSNESS [None]
  - ELECTROLYTE IMBALANCE [None]
  - HAEMOGLOBIN DECREASED [None]
  - HEPATIC FAILURE [None]
  - HEPATOTOXICITY [None]
  - MULTI-ORGAN FAILURE [None]
  - RENAL FAILURE [None]
  - RESPIRATORY ARREST [None]
  - SINUS TACHYCARDIA [None]
  - STRESS SYMPTOMS [None]
  - WHITE BLOOD CELL COUNT INCREASED [None]
